FAERS Safety Report 21301625 (Version 1)
Quarter: 2022Q3

REPORT INFORMATION
  Report Type: Spontaneous
  Country: US (occurrence: US)
  Receive Date: 20220907
  Receipt Date: 20220907
  Transmission Date: 20221026
  Serious: No
  Sender: FDA-Public Use
  Company Number: US-BRISTOL-MYERS SQUIBB COMPANY-2022-101750

PATIENT
  Age: 76 Year
  Sex: Male

DRUGS (2)
  1. POMALYST [Suspect]
     Active Substance: POMALIDOMIDE
     Indication: Plasma cell myeloma
     Dosage: DAILY
     Route: 048
     Dates: start: 202204
  2. POMALYST [Suspect]
     Active Substance: POMALIDOMIDE
     Dosage: 2MG DAILY FOR 21 DAYS ON 7 OFF
     Route: 048

REACTIONS (1)
  - Diarrhoea [Unknown]
